FAERS Safety Report 19629264 (Version 2)
Quarter: 2021Q3

REPORT INFORMATION
  Report Type: Spontaneous
  Country: US (occurrence: US)
  Receive Date: 20210729
  Receipt Date: 20210819
  Transmission Date: 20211014
  Serious: No
  Sender: FDA-Public Use
  Company Number: US-MYLANLABS-2021M1044317

PATIENT
  Sex: Male

DRUGS (1)
  1. NITROGLYCERIN TRANSDERMAL DELIVERY SYSTEM [Suspect]
     Active Substance: NITROGLYCERIN
     Indication: ANGINA PECTORIS
     Dosage: PUT ON CHEST IN THE MORNING AND REMOVE IT BEFORE GOING TO BED AT NIGHT
     Route: 062
     Dates: start: 20200101

REACTIONS (2)
  - Application site erythema [Unknown]
  - Product residue present [Unknown]
